FAERS Safety Report 17482675 (Version 1)
Quarter: 2020Q1

REPORT INFORMATION
  Report Type: Spontaneous
  Country: US (occurrence: US)
  Receive Date: 20200302
  Receipt Date: 20200302
  Transmission Date: 20200409
  Serious: Yes (Other)
  Sender: FDA-Public Use
  Company Number: US-ROCHE-2559437

PATIENT
  Age: 73 Year
  Sex: Male

DRUGS (14)
  1. VENETOCLAX. [Suspect]
     Active Substance: VENETOCLAX
     Route: 065
  2. ALEMTUZUMAB [Concomitant]
     Active Substance: ALEMTUZUMAB
     Indication: PROLYMPHOCYTIC LEUKAEMIA
     Route: 042
  3. CIDOFOVIR. [Concomitant]
     Active Substance: CIDOFOVIR
     Indication: VIRAEMIA
     Route: 065
  4. VALACYCLOVIR [Concomitant]
     Active Substance: VALACYCLOVIR HYDROCHLORIDE
     Indication: PROPHYLAXIS
  5. VENETOCLAX. [Suspect]
     Active Substance: VENETOCLAX
     Route: 065
  6. VENETOCLAX. [Suspect]
     Active Substance: VENETOCLAX
     Route: 065
  7. BACTRIM [Concomitant]
     Active Substance: SULFAMETHOXAZOLE\TRIMETHOPRIM
     Indication: PROPHYLAXIS
  8. VENETOCLAX. [Suspect]
     Active Substance: VENETOCLAX
     Dosage: ON DAY 4-6
     Route: 065
  9. VENETOCLAX. [Suspect]
     Active Substance: VENETOCLAX
     Dosage: ON DAY 7 ONWARDS
     Route: 065
  10. PENTOSTATIN. [Concomitant]
     Active Substance: PENTOSTATIN
     Indication: PROLYMPHOCYTIC LEUKAEMIA
     Route: 065
  11. LEVOFLOXACIN. [Concomitant]
     Active Substance: LEVOFLOXACIN
     Indication: PROPHYLAXIS
  12. VENETOCLAX. [Suspect]
     Active Substance: VENETOCLAX
     Indication: PROLYMPHOCYTIC LEUKAEMIA
     Dosage: ON DAY 1-3
     Route: 065
  13. CLADRIBINE. [Concomitant]
     Active Substance: CLADRIBINE
     Indication: PROLYMPHOCYTIC LEUKAEMIA
     Route: 042
  14. VENETOCLAX. [Suspect]
     Active Substance: VENETOCLAX
     Route: 065

REACTIONS (1)
  - Cytopenia [Recovered/Resolved]
